FAERS Safety Report 5238613-X (Version None)
Quarter: 2007Q1

REPORT INFORMATION
  Report Type: 
  Country: None (occurrence: None)
  Receive Date: 20070215
  Receipt Date: 20070208
  Transmission Date: 20070707
  Serious: Yes (Death, Hospitalization)
  Sender: FDA-Public Use
  Company Number: US-ABBOTT-05P-163-0302128-00

PATIENT
  Sex: Male
  Weight: 103 kg

DRUGS (4)
  1. HUMIRA [Suspect]
     Indication: RHEUMATOID ARTHRITIS
     Route: 058
     Dates: start: 20041217, end: 20050311
  2. DICLOFENAC SODIUM [Concomitant]
     Indication: ANTIINFLAMMATORY THERAPY
     Route: 048
  3. PREDNISONE [Concomitant]
     Indication: RHEUMATOID ARTHRITIS
     Route: 048
  4. SULFASALAZINE [Concomitant]
     Indication: ARTHRITIS
     Route: 048

REACTIONS (7)
  - ACUTE RESPIRATORY FAILURE [None]
  - INTERSTITIAL LUNG DISEASE [None]
  - PNEUMONIA [None]
  - PULMONARY HYPERTENSION [None]
  - PYREXIA [None]
  - RHEUMATOID ARTHRITIS [None]
  - RHEUMATOID LUNG [None]
